FAERS Safety Report 6452748-5 (Version None)
Quarter: 2009Q4

REPORT INFORMATION
  Report Type: 
  Country: None (occurrence: None)
  Receive Date: 20091124
  Receipt Date: 20091112
  Transmission Date: 20100525
  Serious: Yes (Other)
  Sender: FDA-Public Use
  Company Number: JP-PFIZER INC-2009298446

PATIENT
  Age: 75 Year
  Sex: Male

DRUGS (1)
  1. SELARA [Suspect]
     Dosage: 50 MG DAILY
     Route: 048

REACTIONS (1)
  - PNEUMONIA [None]
